FAERS Safety Report 8280535-4 (Version None)
Quarter: 2012Q2

REPORT INFORMATION
  Report Type: 
  Country: None (occurrence: None)
  Receive Date: 20120412
  Receipt Date: 20111012
  Transmission Date: 20120825
  Serious: No
  Sender: FDA-Public Use
  Company Number: US-ASTRAZENECA-2011SE61342

PATIENT
  Age: 57 Year
  Sex: Female
  Weight: 86.2 kg

DRUGS (8)
  1. LOSARTAN WITH HCTZ [Concomitant]
  2. METFORMIN HCL [Concomitant]
  3. AMLODIPINE [Concomitant]
  4. ATENOLOL [Concomitant]
  5. NEXIUM [Suspect]
     Indication: ABDOMINAL DISTENSION
     Dosage: TWO TIMES A DAY
     Route: 048
     Dates: start: 20100101
  6. TRICOR [Concomitant]
  7. VITAMIN B-12 [Concomitant]
  8. EXTRA STRENGTH TYLENOL [Concomitant]

REACTIONS (3)
  - ABDOMINAL PAIN [None]
  - OFF LABEL USE [None]
  - GASTRIC MUCOSA ERYTHEMA [None]
